FAERS Safety Report 18901012 (Version 1)
Quarter: 2021Q1

REPORT INFORMATION
  Report Type: Spontaneous
  Country: US (occurrence: US)
  Receive Date: 20210216
  Receipt Date: 20210216
  Transmission Date: 20210420
  Serious: No
  Sender: FDA-Public Use
  Company Number: US-SA-2021SA046991

PATIENT
  Age: 62 Year
  Sex: Male

DRUGS (2)
  1. LANTUS SOLOSTAR [Suspect]
     Active Substance: INSULIN GLARGINE
     Indication: DIABETES MELLITUS
     Dosage: 252 IU, QD
     Route: 065
     Dates: start: 2011
  2. LANTUS SOLOSTAR [Suspect]
     Active Substance: INSULIN GLARGINE
     Dosage: SPLITTING HIS DOSE AND TAKING THE TWICE A DAY
     Route: 065

REACTIONS (8)
  - Pain [Unknown]
  - Glycosylated haemoglobin increased [Unknown]
  - Memory impairment [Unknown]
  - Wheezing [Unknown]
  - Blood glucose fluctuation [Unknown]
  - Product dose omission in error [Unknown]
  - Exercise tolerance decreased [Unknown]
  - Inappropriate schedule of product administration [Unknown]

NARRATIVE: CASE EVENT DATE: 2020
